FAERS Safety Report 25899657 (Version 1)
Quarter: 2025Q4

REPORT INFORMATION
  Report Type: Spontaneous
  Country: JP (occurrence: JP)
  Receive Date: 20251009
  Receipt Date: 20251009
  Transmission Date: 20260118
  Serious: Yes (Death, Other)
  Sender: TP ANDA HOLDINGS, LLC
  Company Number: JP-TP_ANDA_HOLDINGS-2025TP00002

PATIENT
  Sex: Male

DRUGS (5)
  1. PREDNISOLONE [Suspect]
     Active Substance: PREDNISOLONE
     Indication: Nephrotic syndrome
  2. IMMUNE GLOBULIN NOS [Concomitant]
     Active Substance: IMMUNE GLOBULIN NOS
     Indication: Hypogammaglobulinaemia
  3. CORTISONE [Concomitant]
     Active Substance: CORTISONE
     Indication: Infection
     Dosage: STRESS DOSE
  4. ENALAPRIL [Concomitant]
     Active Substance: ENALAPRIL
     Route: 048
  5. ALBUMIN HUMAN [Concomitant]
     Active Substance: ALBUMIN HUMAN

REACTIONS (3)
  - Multiple organ dysfunction syndrome [Fatal]
  - Necrotising colitis [Fatal]
  - Gastrointestinal infection [Fatal]
